FAERS Safety Report 16607860 (Version 1)
Quarter: 2019Q3

REPORT INFORMATION
  Report Type: Spontaneous
  Country: US (occurrence: US)
  Receive Date: 20190719
  Receipt Date: 20190719
  Transmission Date: 20191004
  Serious: Yes (Hospitalization)
  Sender: FDA-Public Use
  Company Number: None

PATIENT
  Age: 38 Year
  Sex: Female

DRUGS (13)
  1. HYDROXYCHLOR TAB [Concomitant]
  2. VITAMIN C [Concomitant]
     Active Substance: ASCORBIC ACID
  3. ZENCHENT TAB [Concomitant]
  4. XELJANZ [Suspect]
     Active Substance: TOFACITINIB CITRATE
     Indication: RHEUMATOID ARTHRITIS
     Route: 048
     Dates: start: 20160425
  5. MULTIVITAMIN [Concomitant]
     Active Substance: VITAMINS
  6. CALCIFEROL DRO [Concomitant]
  7. TYLENOL [Concomitant]
     Active Substance: ACETAMINOPHEN
  8. HYDROXYZ HCL TAB [Concomitant]
  9. CELEBREX [Concomitant]
     Active Substance: CELECOXIB
  10. ZOLOFT [Concomitant]
     Active Substance: SERTRALINE HYDROCHLORIDE
  11. BALZIVA TAB [Concomitant]
  12. PROMETRIUM [Concomitant]
     Active Substance: PROGESTERONE
  13. PRENATAL [Concomitant]
     Active Substance: VITAMINS

REACTIONS (2)
  - Therapy cessation [None]
  - Knee arthroplasty [None]

NARRATIVE: CASE EVENT DATE: 20190708
